FAERS Safety Report 12897005 (Version 1)
Quarter: 2016Q4

REPORT INFORMATION
  Report Type: Spontaneous
  Country: US (occurrence: US)
  Receive Date: 20161028
  Receipt Date: 20161028
  Transmission Date: 20170207
  Serious: No
  Sender: FDA-Public Use
  Company Number: None

PATIENT
  Age: 19 Year
  Sex: Female
  Weight: 49.5 kg

DRUGS (1)
  1. ICY HOT MEDICATED, ADVANCED RELIEF [Suspect]
     Active Substance: MENTHOL
     Indication: MYALGIA
     Route: 061
     Dates: start: 20161028, end: 20161028

REACTIONS (1)
  - Application site pain [None]

NARRATIVE: CASE EVENT DATE: 20161028
